FAERS Safety Report 5737254-5 (Version None)
Quarter: 2008Q2

REPORT INFORMATION
  Report Type: 
  Country: None (occurrence: None)
  Receive Date: 20080512
  Receipt Date: 20080512
  Transmission Date: 20081010
  Serious: Yes (Disabling, Other)
  Sender: FDA-Public Use
  Company Number: None

PATIENT
  Age: 56 Year
  Sex: Female
  Weight: 86.637 kg

DRUGS (1)
  1. DIGOXEN 0.25MG MYLAN [Suspect]
     Indication: ATRIAL FIBRILLATION
     Dosage: 1 DAILY DAILY PO
     Route: 048
     Dates: start: 20060601, end: 20071101

REACTIONS (4)
  - BRADYCARDIA [None]
  - FATIGUE [None]
  - SOMNOLENCE [None]
  - THERAPEUTIC AGENT TOXICITY [None]
